FAERS Safety Report 8811254 (Version 3)
Quarter: 2012Q4

REPORT INFORMATION
  Report Type: 
  Country: US (occurrence: US)
  Receive Date: 20120927
  Receipt Date: 20121119
  Transmission Date: 20130627
  Serious: Yes (Hospitalization, Other)
  Sender: FDA-Public Use
  Company Number: US-BAYER-2012-098754

PATIENT
  Age: 35 Year
  Sex: Female
  Weight: 104 kg

DRUGS (7)
  1. YASMIN [Suspect]
     Dosage: UNK
     Dates: start: 20030719, end: 200407
  2. XENICAL [Concomitant]
  3. CLINDAMYCIN [Concomitant]
     Dosage: 300 mg, UNK
     Dates: start: 20040523
  4. ADVIL [Concomitant]
     Dosage: UNK
     Dates: start: 200408
  5. SENOKOT [Concomitant]
     Dosage: UNK
     Dates: start: 200408
  6. ORTHO EVRA [Concomitant]
  7. PROTONIX [Concomitant]
     Indication: PROPHYLAXIS

REACTIONS (25)
  - Pulmonary embolism [None]
  - Pulmonary embolism [None]
  - Intracranial venous sinus thrombosis [None]
  - Brain injury [None]
  - Chest pain [None]
  - Convulsion [None]
  - Fear [None]
  - Confusional state [None]
  - Psychiatric symptom [None]
  - Mental impairment [None]
  - Memory impairment [None]
  - Disturbance in attention [None]
  - Asthenia [None]
  - Abnormal sensation in eye [None]
  - Visual acuity reduced [None]
  - Burnout syndrome [None]
  - Fatigue [None]
  - Headache [None]
  - Stress [None]
  - General physical health deterioration [None]
  - Injury [None]
  - Emotional distress [None]
  - Pain [None]
  - Anxiety [None]
  - Anhedonia [None]
